FAERS Safety Report 9096512 (Version 1)
Quarter: 2013Q1

REPORT INFORMATION
  Report Type: Spontaneous
  Country: GB (occurrence: None)
  Receive Date: 20130124
  Receipt Date: 20130124
  Transmission Date: 20140127
  Serious: No
  Sender: FDA-Public Use
  Company Number: THQ2013A00416

PATIENT
  Age: 70 Year
  Sex: Male

DRUGS (6)
  1. LANSOPRAZOLE (LANSOPRAZOLE) [Suspect]
     Indication: PRODUCT USED FOR UNKNOWN INDICATION
     Dates: start: 20120903
  2. DOXAZOSIN MESILATE [Suspect]
     Indication: PRODUCT USED FOR UNKNOWN INDICATION
     Dates: start: 200903, end: 2009
  3. CLOPIDOGREL SULFATE [Suspect]
     Indication: PRODUCT USED FOR UNKNOWN INDICATION
     Dates: start: 201110
  4. ASPIRIN (ACETYLSALICYLIC ACID) [Concomitant]
  5. ENALAPRIL [Concomitant]
  6. AMLODIPINE [Concomitant]

REACTIONS (9)
  - Drug interaction [None]
  - Drug ineffective [None]
  - Contusion [None]
  - Epistaxis [None]
  - Bleeding time prolonged [None]
  - Nocturia [None]
  - Haemorrhage [None]
  - Laceration [None]
  - Arterial occlusive disease [None]
